FAERS Safety Report 24732175 (Version 2)
Quarter: 2024Q4

REPORT INFORMATION
  Report Type: Spontaneous
  Country: IT (occurrence: IT)
  Receive Date: 20241213
  Receipt Date: 20241219
  Transmission Date: 20250115
  Serious: Yes (Death)
  Sender: NOVARTIS
  Company Number: IT-002147023-NVSC2024IT235864

PATIENT
  Age: 82 Year
  Sex: Female

DRUGS (21)
  1. EXJADE [Suspect]
     Active Substance: DEFERASIROX
     Indication: Product used for unknown indication
     Dosage: UNK
     Route: 065
     Dates: start: 20200110
  2. EXJADE [Suspect]
     Active Substance: DEFERASIROX
     Dosage: 180 MG (180 MG X 1CP/DI)
     Route: 065
     Dates: start: 20200628, end: 20220216
  3. RUXOLITINIB [Suspect]
     Active Substance: RUXOLITINIB
     Indication: Myelofibrosis
     Dosage: 10 MG
     Route: 048
     Dates: start: 20140222, end: 20240115
  4. RUXOLITINIB [Suspect]
     Active Substance: RUXOLITINIB
     Dosage: 5 MG (5 MG X 3CPS/DI)
     Route: 065
     Dates: start: 20140424
  5. RUXOLITINIB [Suspect]
     Active Substance: RUXOLITINIB
     Dosage: 10 MG (10 MG X 2CPS/DI)
     Route: 065
     Dates: start: 20140507
  6. RUXOLITINIB [Suspect]
     Active Substance: RUXOLITINIB
     Dosage: 5 MG (5 MG X 2CPS/AL DI)
     Route: 065
     Dates: start: 20140804, end: 20161207
  7. RUXOLITINIB [Concomitant]
     Active Substance: RUXOLITINIB
     Indication: Myelofibrosis
     Dosage: 10 MG, QD
     Route: 048
     Dates: start: 20140222
  8. RUXOLITINIB [Concomitant]
     Active Substance: RUXOLITINIB
     Dosage: 3 DOSAGE FORM (5MGX3CPS) QD
     Route: 065
     Dates: start: 20140424
  9. RUXOLITINIB [Concomitant]
     Active Substance: RUXOLITINIB
     Dosage: 2 DOSAGE FORM (10MGX2CPS) QD
     Route: 065
     Dates: start: 20140507
  10. RUXOLITINIB [Concomitant]
     Active Substance: RUXOLITINIB
     Dosage: 2 DOSAGE FORM (5MGX2CPS) QD
     Route: 065
     Dates: start: 20140804, end: 20161207
  11. RUXOLITINIB [Concomitant]
     Active Substance: RUXOLITINIB
     Dosage: UNK, (5MGX) QD
     Route: 065
     Dates: start: 20161207, end: 20230215
  12. RUXOLITINIB [Concomitant]
     Active Substance: RUXOLITINIB
     Dosage: 10 MG, QD
     Route: 065
  13. Folina [Concomitant]
     Indication: Fatigue
     Dosage: UNK (5MGX2)
     Route: 065
     Dates: start: 20140804, end: 20230215
  14. ESCITALOPRAM [Concomitant]
     Active Substance: ESCITALOPRAM OXALATE
     Indication: Depression
     Dosage: 20 MG/DI
     Route: 065
     Dates: start: 20190710, end: 20230215
  15. Eritropoietina [Concomitant]
     Indication: Anaemia
     Dosage: UNK (40.000)
     Route: 065
     Dates: start: 20220808, end: 20230215
  16. ALLOPURINOL [Concomitant]
     Active Substance: ALLOPURINOL
     Indication: Blood uric acid increased
     Dosage: 300 MG (300 MGX 1 CP\DIE)
     Route: 065
     Dates: start: 20140221, end: 20140516
  17. MODURETIC 5-50 [Concomitant]
     Active Substance: AMILORIDE HYDROCHLORIDE\HYDROCHLOROTHIAZIDE
     Indication: Blood potassium increased
     Dosage: UNK
     Route: 065
     Dates: start: 20140424, end: 20210806
  18. MODURETIC 5-50 [Concomitant]
     Active Substance: AMILORIDE HYDROCHLORIDE\HYDROCHLOROTHIAZIDE
     Dosage: UNK (1CP\DI)
     Route: 065
     Dates: start: 20150221, end: 20210825
  19. ENALAPRIL [Concomitant]
     Active Substance: ENALAPRIL
     Indication: Product used for unknown indication
     Dosage: 20 MG (TO DEATH)
     Route: 065
     Dates: start: 20140804
  20. CARDIOASPIRINA [Concomitant]
     Active Substance: ASPIRIN
     Indication: Hypertension
     Dosage: 100 MG (100 MGX 1CP\DI)
     Route: 065
     Dates: start: 20140221, end: 20141104
  21. VERAPAMIL [Concomitant]
     Active Substance: VERAPAMIL HYDROCHLORIDE
     Indication: Product used for unknown indication
     Dosage: UNK
     Route: 065
     Dates: start: 20140221, end: 2015

REACTIONS (1)
  - Death [Fatal]

NARRATIVE: CASE EVENT DATE: 20240115
